FAERS Safety Report 9705455 (Version 3)
Quarter: 2013Q4

REPORT INFORMATION
  Report Type: Report from Study
  Country: ES (occurrence: ES)
  Receive Date: 20131122
  Receipt Date: 20131128
  Transmission Date: 20140711
  Serious: Yes (Other)
  Sender: FDA-Public Use
  Company Number: ES-BRISTOL-MYERS SQUIBB COMPANY-19712629

PATIENT
  Age: 68 Year
  Sex: Female

DRUGS (1)
  1. BYDUREON [Suspect]
     Indication: DIABETES MELLITUS

REACTIONS (7)
  - Arthropathy [Unknown]
  - Flatulence [Unknown]
  - Dyspepsia [Recovering/Resolving]
  - Nasopharyngitis [Unknown]
  - Affective disorder [Unknown]
  - Spinal disorder [Unknown]
  - Abdominal discomfort [Unknown]
